FAERS Safety Report 8322601-0 (Version None)
Quarter: 2012Q2

REPORT INFORMATION
  Report Type: 
  Country: None (occurrence: None)
  Receive Date: 20120426
  Receipt Date: 20120407
  Transmission Date: 20120825
  Serious: Yes (Hospitalization, Other)
  Sender: FDA-Public Use
  Company Number: 001191505A

PATIENT
  Age: 40 Year
  Sex: Female

DRUGS (1)
  1. PROACTIV 90 DAY KIT [Suspect]
     Indication: ACNE
     Dosage: ONCE DAILY, DERMAL
     Dates: start: 20120316

REACTIONS (4)
  - SWELLING FACE [None]
  - ERYTHEMA [None]
  - RASH [None]
  - PRURITUS [None]
